FAERS Safety Report 8773775 (Version 2)
Quarter: 2012Q4

REPORT INFORMATION
  Report Type: 
  Country: US (occurrence: US)
  Receive Date: 20120907
  Receipt Date: 20121008
  Transmission Date: 20130627
  Serious: Yes (Life-Threatening, Hospitalization, Other)
  Sender: FDA-Public Use
  Company Number: US-B.I. PHARMACEUTICALS,INC./RIDGEFIELD-2012-BP-21312BP

PATIENT
  Age: 70 None
  Sex: Male
  Weight: 87 kg

DRUGS (5)
  1. PRADAXA [Suspect]
     Indication: PROPHYLAXIS
     Dosage: 300 mg
     Route: 048
     Dates: start: 20110829, end: 20120416
  2. PRADAXA [Suspect]
     Indication: ATRIAL FIBRILLATION
  3. METOPROLOL [Concomitant]
     Indication: HEART RATE ABNORMAL
     Dosage: 100 mg
     Route: 048
     Dates: start: 20120214, end: 20120416
  4. METOPROLOL [Concomitant]
     Indication: ATRIAL FIBRILLATION
  5. COUMADIN [Concomitant]
     Indication: PROPHYLAXIS
     Dosage: 2 mg
     Route: 048
     Dates: start: 20120501

REACTIONS (16)
  - Cardiac tamponade [Recovered/Resolved]
  - Hypotension [Recovered/Resolved]
  - Acute respiratory failure [Recovered/Resolved]
  - Ischaemic hepatitis [Recovered/Resolved]
  - Coma [Recovered/Resolved with Sequelae]
  - Cardiac arrest [Recovered/Resolved]
  - Renal failure acute [Recovered/Resolved]
  - Hepatic failure [Recovered/Resolved]
  - Gait disturbance [Recovered/Resolved]
  - Unevaluable event [Not Recovered/Not Resolved]
  - Aspiration [Recovered/Resolved]
  - Aphasia [Not Recovered/Not Resolved]
  - Asthenia [Not Recovered/Not Resolved]
  - Nausea [Recovered/Resolved]
  - Cough [Not Recovered/Not Resolved]
  - Muscular weakness [Not Recovered/Not Resolved]
